FAERS Safety Report 19720412 (Version 15)
Quarter: 2025Q4

REPORT INFORMATION
  Report Type: Spontaneous
  Country: EU (occurrence: EU)
  Receive Date: 20210818
  Receipt Date: 20251201
  Transmission Date: 20260117
  Serious: Yes (Hospitalization, Other)
  Sender: PFIZER
  Company Number: EU-TAKEDA-2021TEU007013

PATIENT
  Age: 73 Year
  Sex: Female
  Weight: 60 kg

DRUGS (24)
  1. APIXABAN [Suspect]
     Active Substance: APIXABAN
     Dosage: 5 MG, 2X/DAY
     Route: 048
  2. APIXABAN [Suspect]
     Active Substance: APIXABAN
     Dosage: 10 MILLIGRAM, QD
     Route: 048
  3. APIXABAN [Suspect]
     Active Substance: APIXABAN
     Dosage: 5 MILLIGRAM, BID (1-0-1-0 )
     Route: 048
  4. PANTOPRAZOLE [Suspect]
     Active Substance: PANTOPRAZOLE
     Dosage: 40 MILLIGRAM, QD (1-0-0-0)
     Route: 065
  5. NALOXONE HYDROCHLORIDE\TILIDINE HYDROCHLORIDE [Suspect]
     Active Substance: NALOXONE HYDROCHLORIDE\TILIDINE HYDROCHLORIDE
     Dosage: 50/4 MILLIGRAM, BID (1-0-0-1)
     Route: 065
  6. NALOXONE HYDROCHLORIDE\TILIDINE HYDROCHLORIDE [Suspect]
     Active Substance: NALOXONE HYDROCHLORIDE\TILIDINE HYDROCHLORIDE
     Dosage: UNK, QD
     Route: 065
  7. POLYETHYLENE GLYCOLS [Suspect]
     Active Substance: POLYETHYLENE GLYCOLS
     Dosage: 13.8 MG QD (1-0-0-0)
     Route: 065
  8. VALSARTAN [Suspect]
     Active Substance: VALSARTAN
     Dosage: 80 MILLIGRAM, BID (1-0-1-0)
     Route: 065
  9. VALSARTAN [Suspect]
     Active Substance: VALSARTAN
     Dosage: 160 MILLIGRAM, QD
     Route: 065
  10. FOLIC ACID [Suspect]
     Active Substance: FOLIC ACID
     Dosage: 0.4 MILLIGRAM, QD (1-0-0-0)
     Route: 065
  11. TORSEMIDE [Suspect]
     Active Substance: TORSEMIDE
     Dosage: 5 MILLIGRAM, 2-1-0-0
     Route: 065
  12. METAMIZOL [Suspect]
     Active Substance: METAMIZOLE SODIUM
     Dosage: 500 MILLIGRAM, 1-1-1-1
     Route: 065
  13. METAMIZOL [Suspect]
     Active Substance: METAMIZOLE SODIUM
     Dosage: 2000 MILLIGRAM, QD
     Route: 065
  14. POTASSIUM CITRATE [Suspect]
     Active Substance: POTASSIUM CITRATE
     Dosage: 4.5 GRAM BID (1-0-1-0)
     Route: 065
  15. POTASSIUM CITRATE [Suspect]
     Active Substance: POTASSIUM CITRATE
     Dosage: 9 GRAM, QD
     Route: 065
  16. CHOLECALCIFEROL [Suspect]
     Active Substance: CHOLECALCIFEROL
     Dosage: 1000 INTERNATIONAL UNIT, QD (1-0-0-0)
     Route: 065
  17. TROSPIUM CHLORIDE [Suspect]
     Active Substance: TROSPIUM CHLORIDE
     Dosage: 60 MILLIGRAM, QD (1-0-0-0)
     Route: 065
  18. ALLOPURINOL [Suspect]
     Active Substance: ALLOPURINOL
     Dosage: 300 MILLIGRAM, QD (0-1-0-0)
     Route: 065
  19. HYDROMORPHONE HYDROCHLORIDE\NALOXONE HYDROCHLORIDE [Suspect]
     Active Substance: HYDROMORPHONE HYDROCHLORIDE\NALOXONE HYDROCHLORIDE
     Dosage: 1.3 MG, PRN
     Route: 065
  20. ALISKIREN\HYDROCHLOROTHIAZIDE [Suspect]
     Active Substance: ALISKIREN\HYDROCHLOROTHIAZIDE
     Dosage: 25 MILLIGRAM, QD
     Route: 065
  21. ALISKIREN\HYDROCHLOROTHIAZIDE [Concomitant]
     Active Substance: ALISKIREN\HYDROCHLOROTHIAZIDE
     Dosage: 12.5 MILLIGRAM, BID (1-0-1-0)
     Route: 065
  22. HYDROCHLOROTHIAZIDE [Concomitant]
     Active Substance: HYDROCHLOROTHIAZIDE
     Dosage: 12.5 MG, 1-0-1-0
     Route: 065
  23. HYDROCHLOROTHIAZIDE [Concomitant]
     Active Substance: HYDROCHLOROTHIAZIDE
     Dosage: 25 MILLIGRAM, QD
     Route: 065
  24. FOLIC ACID [Concomitant]
     Active Substance: FOLIC ACID
     Dosage: 0.4 MILLIGRAM, QD
     Route: 065

REACTIONS (3)
  - Haematochezia [Unknown]
  - Dementia [Unknown]
  - Dizziness [Unknown]
